FAERS Safety Report 4781315-4 (Version None)
Quarter: 2005Q3

REPORT INFORMATION
  Report Type: 
  Country: None (occurrence: None)
  Receive Date: 20050928
  Receipt Date: 20050915
  Transmission Date: 20060218
  Serious: Yes (Other)
  Sender: FDA-Public Use
  Company Number: 2005AC01496

PATIENT
  Age: 18592 Day
  Sex: Female

DRUGS (3)
  1. CRESTOR [Suspect]
     Route: 048
     Dates: start: 20050418, end: 20050711
  2. LIVIAL [Concomitant]
     Route: 048
  3. OXAZEPAMUM [Concomitant]
     Route: 048
     Dates: start: 20021106

REACTIONS (1)
  - COAGULOPATHY [None]
